FAERS Safety Report 4423142-3 (Version None)
Quarter: 2004Q3

REPORT INFORMATION
  Report Type: 
  Country: None (occurrence: None)
  Receive Date: 20040811
  Receipt Date: 20040802
  Transmission Date: 20050211
  Serious: Yes (Other)
  Sender: FDA-Public Use
  Company Number: US-MERCK-0408USA00150

PATIENT
  Age: 48 Year
  Sex: Female

DRUGS (1)
  1. VIOXX [Suspect]
     Indication: ARTHRALGIA
     Route: 065

REACTIONS (2)
  - DEAFNESS UNILATERAL [None]
  - HYPOACUSIS [None]
